FAERS Safety Report 4509312-4 (Version None)
Quarter: 2004Q4

REPORT INFORMATION
  Report Type: 
  Country: None (occurrence: None)
  Receive Date: 20041025
  Receipt Date: 20040817
  Transmission Date: 20050328
  Serious: Yes (Other)
  Sender: FDA-Public Use
  Company Number: US-JNJFOC-20040806230

PATIENT
  Age: 39 Year
  Sex: Female

DRUGS (4)
  1. REMICADE [Suspect]
     Indication: CROHN'S DISEASE
     Dosage: INTRAVENOUS
     Route: 042
     Dates: start: 20040806
  2. PENTASA [Concomitant]
  3. MERCAPTOPURINE [Concomitant]
  4. ESTRADIAL [Concomitant]

REACTIONS (2)
  - CONVULSION [None]
  - PYREXIA [None]
